FAERS Safety Report 9857234 (Version 2)
Quarter: 2014Q1

REPORT INFORMATION
  Report Type: Not Available
  Country: US (occurrence: US)
  Receive Date: 20140130
  Receipt Date: 20140210
  Transmission Date: 20141002
  Serious: Yes (Death)
  Sender: FDA-Public Use
  Company Number: US-ONYX-2014-0232

PATIENT
  Age: 79 Year
  Sex: Male

DRUGS (10)
  1. KYPROLIS [Suspect]
     Indication: PLASMA CELL MYELOMA
     Route: 042
     Dates: start: 20140127, end: 20140128
  2. LENALIDOMIDE [Concomitant]
  3. CARDURA [Concomitant]
     Indication: BLOOD PRESSURE
  4. GABAPENTIN [Concomitant]
     Indication: NEUROPATHY PERIPHERAL
  5. LASIX [Concomitant]
     Indication: FLUID RETENTION
  6. SIMVASTATIN [Concomitant]
     Indication: BLOOD CHOLESTEROL
  7. PROTONIX [Concomitant]
     Indication: GASTRIC PH DECREASED
  8. AMLODIPINE [Concomitant]
     Indication: BLOOD PRESSURE INCREASED
  9. B 12 [Concomitant]
     Indication: BLOOD IRON
  10. PROCRIT [Concomitant]
     Indication: PRODUCT USED FOR UNKNOWN INDICATION

REACTIONS (1)
  - Death [Fatal]
